FAERS Safety Report 4299940-6 (Version None)
Quarter: 2004Q1

REPORT INFORMATION
  Report Type: 
  Country: None (occurrence: None)
  Receive Date: 20040220
  Receipt Date: 20031111
  Transmission Date: 20041129
  Serious: Yes (Other)
  Sender: FDA-Public Use
  Company Number: PHBS2003BR12590

PATIENT
  Age: 52 Year
  Sex: Female

DRUGS (1)
  1. CODATEN [Suspect]
     Indication: BACK PAIN
     Dosage: 1 DF, ONCE/SINGLE
     Route: 048
     Dates: start: 20031110, end: 20031110

REACTIONS (6)
  - ABDOMINAL PAIN UPPER [None]
  - ERYTHEMA [None]
  - HEARING IMPAIRED [None]
  - HYPERHIDROSIS [None]
  - PALLOR [None]
  - VISUAL DISTURBANCE [None]
